FAERS Safety Report 7908403-5 (Version None)
Quarter: 2011Q4

REPORT INFORMATION
  Report Type: 
  Country: None (occurrence: None)
  Receive Date: 20111111
  Receipt Date: 20111103
  Transmission Date: 20120403
  Serious: Yes (Other)
  Sender: FDA-Public Use
  Company Number: US-JNJFOC-20111102354

PATIENT
  Sex: Male
  Weight: 74.84 kg

DRUGS (6)
  1. DILANTIN [Concomitant]
     Route: 048
  2. FENTANYL-100 [Suspect]
     Indication: BACK PAIN
     Route: 062
     Dates: start: 20090101
  3. FENTANYL-100 [Suspect]
     Indication: NEOPLASM MALIGNANT
     Route: 062
     Dates: start: 20090101
  4. KEPPRA [Suspect]
     Indication: CONVULSION
     Route: 048
     Dates: end: 20110301
  5. NEURONTIN [Concomitant]
     Indication: CONVULSION
     Route: 048
  6. DILANTIN [Concomitant]
     Indication: CONVULSION
     Route: 048
     Dates: start: 20110301

REACTIONS (4)
  - POOR QUALITY DRUG ADMINISTERED [None]
  - PRODUCT QUALITY ISSUE [None]
  - OSTEOPENIA [None]
  - DRUG INEFFECTIVE [None]
